FAERS Safety Report 13233810 (Version 1)
Quarter: 2017Q1

REPORT INFORMATION
  Report Type: Spontaneous
  Country: US (occurrence: US)
  Receive Date: 20170214
  Receipt Date: 20170214
  Transmission Date: 20170428
  Serious: No
  Sender: FDA-Public Use
  Company Number: None

PATIENT
  Sex: Female

DRUGS (1)
  1. SUTENT [Suspect]
     Active Substance: SUNITINIB MALATE
     Indication: NEOPLASM MALIGNANT
     Dosage: 3 CAPSULES (37.5MG) DAILY FOR 14 DAYS ONA DN7 DAYS OFF BY MOUTH
     Route: 048
     Dates: start: 20170126

REACTIONS (2)
  - Oral pain [None]
  - Diarrhoea [None]
